FAERS Safety Report 23896557 (Version 1)
Quarter: 2024Q2

REPORT INFORMATION
  Report Type: Spontaneous
  Country: CN (occurrence: CN)
  Receive Date: 20240524
  Receipt Date: 20240524
  Transmission Date: 20240716
  Serious: Yes (Hospitalization)
  Sender: FDA-Public Use
  Company Number: CN-BAYER-2024A075843

PATIENT
  Age: 83 Year
  Sex: Male

DRUGS (2)
  1. KERENDIA [Suspect]
     Active Substance: FINERENONE
     Indication: Proteinuria
     Dosage: 10 MG, QD
     Route: 048
     Dates: start: 20240514, end: 20240514
  2. KERENDIA [Suspect]
     Active Substance: FINERENONE
     Indication: Chronic kidney disease

REACTIONS (5)
  - Toxic epidermal necrolysis [Recovering/Resolving]
  - Pruritus [None]
  - Erythema [None]
  - Skin swelling [None]
  - Blister [None]

NARRATIVE: CASE EVENT DATE: 20240501
